FAERS Safety Report 10685113 (Version 1)
Quarter: 2014Q4

REPORT INFORMATION
  Report Type: Spontaneous
  Country: IT (occurrence: IT)
  Receive Date: 20141231
  Receipt Date: 20141231
  Transmission Date: 20150529
  Serious: Yes (Hospitalization)
  Sender: FDA-Public Use
  Company Number: IT-JNJFOC-20141217589

PATIENT
  Age: 85 Year
  Sex: Female

DRUGS (7)
  1. EUTIROX [Concomitant]
     Active Substance: LEVOTHYROXINE SODIUM
     Indication: PRODUCT USED FOR UNKNOWN INDICATION
     Route: 048
  2. BISOPROLOL HEMIFUMARATE [Concomitant]
     Active Substance: BISOPROLOL FUMARATE
     Indication: PRODUCT USED FOR UNKNOWN INDICATION
     Route: 065
  3. PANTOPRAZOLE SODIUM [Concomitant]
     Active Substance: PANTOPRAZOLE SODIUM
     Indication: PRODUCT USED FOR UNKNOWN INDICATION
     Route: 065
  4. PLAVIX [Concomitant]
     Active Substance: CLOPIDOGREL BISULFATE
     Indication: PRODUCT USED FOR UNKNOWN INDICATION
     Route: 048
  5. MICARDIS [Concomitant]
     Active Substance: TELMISARTAN
     Indication: PRODUCT USED FOR UNKNOWN INDICATION
     Route: 048
  6. PATROL [Suspect]
     Active Substance: ACETAMINOPHEN\TRAMADOL HYDROCHLORIDE
     Indication: BONE PAIN
     Route: 048
     Dates: start: 20141218, end: 20141218
  7. LASIX [Concomitant]
     Active Substance: FUROSEMIDE
     Indication: PRODUCT USED FOR UNKNOWN INDICATION
     Route: 048

REACTIONS (3)
  - Sopor [Recovered/Resolved]
  - Nausea [Recovered/Resolved]
  - Vomiting [Recovered/Resolved]

NARRATIVE: CASE EVENT DATE: 20141218
